FAERS Safety Report 7282022-9 (Version None)
Quarter: 2011Q1

REPORT INFORMATION
  Report Type: 
  Country: None (occurrence: None)
  Receive Date: 20110208
  Receipt Date: 20110119
  Transmission Date: 20110831
  Serious: Yes (Other)
  Sender: FDA-Public Use
  Company Number: PHHY2010JP85332

PATIENT
  Age: 82 Year
  Sex: Male
  Weight: 77 kg

DRUGS (5)
  1. MELOXICAM [Concomitant]
  2. LANSOPRAZOLE [Suspect]
     Indication: REFLUX OESOPHAGITIS
     Dosage: 30 MG, QD
     Route: 048
     Dates: start: 20050101
  3. TRIMEBUTINE [Concomitant]
     Indication: IRRITABLE BOWEL SYNDROME
  4. NSAID'S [Concomitant]
  5. CANDESARTAN CILEXETIL [Concomitant]
     Dates: start: 20060101

REACTIONS (7)
  - OEDEMA MUCOSAL [None]
  - COLITIS COLLAGENOUS [None]
  - DIARRHOEA [None]
  - GASTROINTESTINAL INFLAMMATION [None]
  - EXCESSIVE GRANULATION TISSUE [None]
  - GASTROINTESTINAL TRACT MUCOSAL DISCOLOURATION [None]
  - IRRITABLE BOWEL SYNDROME [None]
